FAERS Safety Report 9472150 (Version 3)
Quarter: 2014Q1

REPORT INFORMATION
  Report Type: Spontaneous
  Country: NO (occurrence: NO)
  Receive Date: 20130823
  Receipt Date: 20140120
  Transmission Date: 20141002
  Serious: Yes (Hospitalization)
  Sender: FDA-Public Use
  Company Number: NO-ROCHE-1260225

PATIENT
  Age: 72 Year
  Sex: Male

DRUGS (43)
  1. ANEXATE [Suspect]
     Indication: REVERSAL OF SEDATION
     Route: 065
     Dates: start: 20130516, end: 20130516
  2. MIDAZOLAM ROCHE UNSPEC. [Interacting]
     Indication: SEDATION
     Dosage: 10 MG/HR
     Route: 065
     Dates: start: 20130426, end: 20130427
  3. MIDAZOLAM ROCHE UNSPEC. [Interacting]
     Dosage: DOSE; 7 MG/HR
     Route: 065
     Dates: start: 20130427, end: 20130428
  4. MIDAZOLAM ROCHE UNSPEC. [Interacting]
     Dosage: DOSE: 3 MG/HR
     Route: 065
     Dates: start: 20130428, end: 20130429
  5. PROPOFOL [Suspect]
     Indication: CONVULSION
     Dosage: 50 MG X APPROXIMATELY 10 PER DAY
     Route: 065
     Dates: start: 20130427, end: 20130428
  6. STESOLID [Interacting]
     Indication: CONVULSION
     Route: 065
     Dates: start: 20130429, end: 20130503
  7. CATAPRESAN [Suspect]
     Indication: SEDATION
     Route: 065
     Dates: start: 20130502, end: 20130509
  8. FENTANYL [Suspect]
     Indication: SEDATION
     Route: 062
     Dates: start: 20130426, end: 20130430
  9. FENTANYL [Suspect]
     Route: 065
     Dates: start: 20130428, end: 20130430
  10. DEXMEDETOMIDINE [Suspect]
     Indication: SEDATION
     Route: 065
     Dates: start: 20130428, end: 20130501
  11. DIFLUCAN [Interacting]
     Indication: FUNGAL INFECTION
     Route: 065
     Dates: start: 20130506, end: 20130507
  12. DIFLUCAN [Interacting]
     Route: 065
     Dates: start: 20130507, end: 20130520
  13. DIFLUCAN [Interacting]
     Route: 065
     Dates: start: 20130521, end: 20130522
  14. AMINOPHYLLINE [Interacting]
     Indication: ASTHMA
     Dosage: 50-25 MG/H
     Route: 065
     Dates: start: 20130516, end: 20130520
  15. FOSPHENYTOIN [Interacting]
     Indication: CONVULSION
     Dosage: 30/4 2000 MG BOLUS, 1/5 300 MG FNEX2, 2/5-10/5 400 MG FNEX2, 11/5 300 MG FNEX2, 12/5 300 MG X1
     Route: 065
     Dates: start: 20130430, end: 20130512
  16. SINGULAIR [Concomitant]
     Indication: ASTHMA
     Route: 065
     Dates: start: 20130513, end: 20130522
  17. SPIRIX [Concomitant]
     Indication: DIURETIC THERAPY
     Route: 065
     Dates: start: 20130503, end: 20130522
  18. VENTOLINE [Concomitant]
     Indication: ASTHMA
     Route: 065
     Dates: start: 20130426, end: 20130522
  19. ACTRAPID PENFILL [Concomitant]
     Indication: BLOOD GLUCOSE ABNORMAL
     Dosage: 1 IU/ML
     Route: 065
     Dates: start: 20130426, end: 20130522
  20. KLEXANE [Concomitant]
     Indication: THROMBOSIS PROPHYLAXIS
     Route: 065
     Dates: start: 20130426, end: 20130427
  21. KAJOS [Concomitant]
     Indication: MINERAL SUPPLEMENTATION
     Dosage: FROM 20130501: 30 ML X 3, FROM 20130504: 15  ML X 2
     Route: 048
     Dates: start: 20130501, end: 20130517
  22. SOLU-CORTEF [Concomitant]
     Indication: ASTHMA
     Dosage: FROM 20130426: 100 MG X 2, FROM 20130509: 50 MG X 2
     Route: 065
     Dates: start: 20130426, end: 20130521
  23. CEFUROXIM [Concomitant]
     Indication: INFECTION
     Route: 065
     Dates: start: 20130426, end: 20130501
  24. ESIDREX [Concomitant]
     Dosage: ESIDREZ WAS USED TO INCREASE TO INCRAESE SODIUM EXCREATION
     Route: 065
     Dates: start: 20130430, end: 20130507
  25. VANCOMYCIN [Concomitant]
     Indication: INFECTION
     Route: 065
     Dates: start: 20130516, end: 20130522
  26. KEPPRA [Concomitant]
     Indication: EPILEPSY
     Dosage: FROM 20130508: 500 MG X 2, FROM 20130510: 750 MG X 2
     Route: 065
     Dates: start: 20130508, end: 20130522
  27. CETIRIZINE [Concomitant]
     Indication: HYPERSENSITIVITY
     Route: 065
     Dates: start: 20130507, end: 20130522
  28. RELISTOR [Concomitant]
     Route: 065
     Dates: start: 20130427, end: 20130430
  29. MERONEM [Concomitant]
     Indication: INFECTION
     Route: 065
     Dates: start: 20130505, end: 20130512
  30. AFIPRAN [Concomitant]
     Route: 065
     Dates: start: 20130427, end: 20130504
  31. DIAMOX [Concomitant]
     Indication: METABOLIC ALKALOSIS
     Route: 065
     Dates: start: 20130427, end: 20130430
  32. LAXOBERAL [Concomitant]
     Dosage: 10-15 GTT X 1-2
     Route: 065
     Dates: start: 20130427, end: 20130522
  33. NOREPINEPHRINE [Concomitant]
     Indication: VASOPRESSIVE THERAPY
     Dosage: TITRATED TO EFFECT, INTERMITTENT USE AS NEEDED
     Route: 065
  34. DALACIN [Concomitant]
     Indication: INFECTION
     Route: 065
     Dates: start: 20130428, end: 20130428
  35. SOMAC (NORWAY) [Concomitant]
     Indication: PROPHYLAXIS AGAINST GASTROINTESTINAL ULCER
     Route: 065
     Dates: start: 20130426, end: 20130522
  36. RIVOTRIL [Concomitant]
     Indication: EPILEPSY
     Route: 065
     Dates: start: 20130509, end: 20130516
  37. FRAGMIN [Concomitant]
     Indication: THROMBOSIS PROPHYLAXIS
     Dosage: 2500-5000 IU X 1
     Route: 065
     Dates: start: 20130428, end: 20130522
  38. SULFAMETHOXAZOLE/TRIMETHOPRIM [Concomitant]
     Indication: INFECTION
     Route: 048
     Dates: start: 20130517, end: 20130518
  39. BURINEX [Concomitant]
     Dosage: 0,5-1 MG X 3-4
     Route: 065
     Dates: start: 20130505, end: 20130522
  40. BACTRIM [Concomitant]
     Indication: INFECTION
     Route: 065
     Dates: start: 20130519, end: 20130522
  41. POTASSIUM CHLORIDE [Concomitant]
     Indication: MINERAL SUPPLEMENTATION
     Route: 048
     Dates: start: 20130517, end: 20130522
  42. ATROVENT [Concomitant]
     Indication: ASTHMA
     Route: 065
     Dates: start: 20130426, end: 20130522
  43. NALOXONE [Concomitant]
     Route: 065
     Dates: start: 20130516, end: 20130516

REACTIONS (3)
  - Drug effect prolonged [Recovered/Resolved]
  - Drug interaction [Unknown]
  - Coma [Recovered/Resolved]
